FAERS Safety Report 16195267 (Version 1)
Quarter: 2019Q2

REPORT INFORMATION
  Report Type: Report from Study
  Country: IT (occurrence: IT)
  Receive Date: 20190415
  Receipt Date: 20190415
  Transmission Date: 20190711
  Serious: Yes (Other)
  Sender: FDA-Public Use
  Company Number: IT-ACCORD-121271

PATIENT
  Age: 69 Year
  Sex: Male

DRUGS (7)
  1. CONGESCOR [Concomitant]
     Active Substance: BISOPROLOL
     Dosage: STRENGTH : 2.5 MG
     Route: 048
  2. CLOPIDOGREL [Suspect]
     Active Substance: CLOPIDOGREL BISULFATE
     Indication: PLATELET AGGREGATION INHIBITION
     Route: 048
     Dates: start: 20180801, end: 20180921
  3. TORVAST [Concomitant]
     Active Substance: ATORVASTATIN
     Dosage: STRENGTH: 20 MG
     Route: 048
  4. AVODART [Concomitant]
     Active Substance: DUTASTERIDE
     Dosage: STRENGTH: 0.5 MG
     Route: 048
  5. LYRICA [Concomitant]
     Active Substance: PREGABALIN
     Route: 048
  6. CARDIOASPIRIN [Concomitant]
     Active Substance: ASPIRIN
     Dosage: STRENGTH:  100 MG
     Route: 048
  7. LASIX [Suspect]
     Active Substance: FUROSEMIDE
     Indication: HYPERTENSION
     Dosage: 25 MG
     Route: 048
     Dates: start: 20180801, end: 20180921

REACTIONS (1)
  - Toxic skin eruption [Recovering/Resolving]

NARRATIVE: CASE EVENT DATE: 20180907
